FAERS Safety Report 10418240 (Version 1)
Quarter: 2014Q2

REPORT INFORMATION
  Report Type: Spontaneous
  Country: US (occurrence: None)
  Receive Date: 20140609
  Receipt Date: 20140609
  Transmission Date: 20141212
  Serious: No
  Sender: FDA-Public Use
  Company Number: 2014TUS001856

PATIENT
  Age: 70 Year
  Sex: Female

DRUGS (2)
  1. BRINTELLIX (VORTIOXETINE) TABLET, 10MG [Suspect]
     Indication: MAJOR DEPRESSION
     Route: 048
  2. ALL OTHER THERAPEUTIC PRODUCTS (ALL OTHER THERAPEUTIC PRODUCTS) [Concomitant]

REACTIONS (1)
  - Abnormal behaviour [None]
